FAERS Safety Report 6079501-9 (Version None)
Quarter: 2009Q1

REPORT INFORMATION
  Report Type: 
  Country: None (occurrence: None)
  Receive Date: 20090216
  Receipt Date: 20090209
  Transmission Date: 20090719
  Serious: Yes (Other)
  Sender: FDA-Public Use
  Company Number: GB-RANBAXY-2009RR-21667

PATIENT
  Age: 73 Year
  Sex: Female

DRUGS (4)
  1. RANITIDINE [Suspect]
     Indication: OESOPHAGEAL ULCER
     Dosage: 150 MG, BID
     Route: 048
  2. ASPIRIN [Concomitant]
     Dosage: 7 MG, QD
  3. ATORVASTATIN [Concomitant]
     Dosage: 20 MG, QD
  4. BENDROFLUAZIDE [Concomitant]
     Dosage: 2.5 MG, QD

REACTIONS (4)
  - DYSPEPSIA [None]
  - ERUCTATION [None]
  - FOOD AVERSION [None]
  - NAUSEA [None]
